FAERS Safety Report 11285320 (Version 1)
Quarter: 2015Q3

REPORT INFORMATION
  Report Type: Spontaneous
  Country: US (occurrence: US)
  Receive Date: 20150720
  Receipt Date: 20150720
  Transmission Date: 20151125
  Serious: No
  Sender: FDA-Public Use
  Company Number: US-GLAXOSMITHKLINE-US2015099844

PATIENT
  Age: 39 Year
  Sex: Female

DRUGS (4)
  1. BACTRIM [Concomitant]
     Active Substance: SULFAMETHOXAZOLE\TRIMETHOPRIM
  2. ASPIRIN (BABY) [Concomitant]
     Active Substance: ASPIRIN
  3. BACTROBAN [Suspect]
     Active Substance: MUPIROCIN\MUPIROCIN CALCIUM
     Indication: STAPHYLOCOCCAL INFECTION
     Dosage: 1 DF, SINGLE
     Route: 045
     Dates: start: 20150709
  4. METOPROLOL [Concomitant]
     Active Substance: METOPROLOL

REACTIONS (8)
  - Vision blurred [Recovered/Resolved]
  - Sinus congestion [Not Recovered/Not Resolved]
  - Heart rate increased [Recovered/Resolved]
  - Nausea [Recovered/Resolved]
  - Eye pain [Recovered/Resolved]
  - Malaise [Recovered/Resolved]
  - Sinus headache [Recovered/Resolved]
  - Headache [Recovered/Resolved]

NARRATIVE: CASE EVENT DATE: 20150710
